FAERS Safety Report 8932855 (Version 1)
Quarter: 2012Q4

REPORT INFORMATION
  Report Type: 
  Country: US (occurrence: US)
  Receive Date: 20121129
  Receipt Date: 20121129
  Transmission Date: 20130627
  Serious: Yes (Other)
  Sender: FDA-Public Use
  Company Number: US-RANBAXY-2012US-62411

PATIENT
  Age: 66 Year
  Sex: Male

DRUGS (2)
  1. FLUOXETINE [Suspect]
     Indication: ANXIETY
     Dosage: Dose range 20-60 mg
     Route: 065
  2. FLUOXETINE [Suspect]
     Indication: DEPRESSION

REACTIONS (2)
  - Parkinson^s disease [Unknown]
  - Tardive dyskinesia [Recovered/Resolved]
